FAERS Safety Report 20609506 (Version 3)
Quarter: 2025Q4

REPORT INFORMATION
  Report Type: Spontaneous
  Country: EU (occurrence: EU)
  Receive Date: 20220318
  Receipt Date: 20251023
  Transmission Date: 20260117
  Serious: Yes (Hospitalization, Other)
  Sender: AUROBINDO
  Company Number: EU-VEMEDIA-202200015

PATIENT
  Age: 54 Year
  Sex: Female
  Weight: 50 kg

DRUGS (4)
  1. ACETAMINOPHEN [Suspect]
     Active Substance: ACETAMINOPHEN
     Indication: Poisoning
     Dosage: 12.5 GRAM, 1 TOTAL (250 MG/KG)
     Route: 048
  2. TRAMADOL [Concomitant]
     Active Substance: TRAMADOL
     Indication: Product used for unknown indication
     Dosage: UNK
     Route: 065
  3. POLYETHYLENE GLYCOLS [Concomitant]
     Active Substance: POLYETHYLENE GLYCOLS
     Indication: Product used for unknown indication
     Dosage: UNK
     Route: 065
  4. DOMPERIDONE [Concomitant]
     Active Substance: DOMPERIDONE
     Indication: Product used for unknown indication
     Dosage: UNK
     Route: 065

REACTIONS (8)
  - Poisoning [Unknown]
  - Drug clearance decreased [Recovered/Resolved]
  - Alcohol interaction [Unknown]
  - Intentional overdose [Unknown]
  - Vitamin B12 deficiency [Unknown]
  - Macrocytosis [Unknown]
  - Gamma-glutamyltransferase increased [Unknown]
  - Folate deficiency [Unknown]
